FAERS Safety Report 8381190-5 (Version None)
Quarter: 2012Q2

REPORT INFORMATION
  Report Type: 
  Country: None (occurrence: None)
  Receive Date: 20120522
  Receipt Date: 20120130
  Transmission Date: 20120825
  Serious: Yes (Other)
  Sender: FDA-Public Use
  Company Number: 2011-07513

PATIENT
  Age: 85 Year
  Sex: Male

DRUGS (8)
  1. ADVIL [Concomitant]
  2. PREDNISONE [Concomitant]
  3. THERACYS [Suspect]
     Indication: BLADDER CANCER
     Dates: start: 20110603, end: 20110620
  4. OXYBUTYNIN [Concomitant]
  5. ATENOLOL [Concomitant]
  6. ASPIRIN [Concomitant]
  7. INTERFERON [Suspect]
     Indication: BLADDER CANCER
     Dosage: I, VES, BLADER
     Route: 042
     Dates: start: 20110603, end: 20110620
  8. FLOMAX [Concomitant]

REACTIONS (7)
  - INSOMNIA [None]
  - POLLAKIURIA [None]
  - ACTIVITIES OF DAILY LIVING IMPAIRED [None]
  - DYSURIA [None]
  - BLADDER IRRITATION [None]
  - MICTURITION URGENCY [None]
  - INCORRECT DOSE ADMINISTERED [None]
